FAERS Safety Report 12689151 (Version 1)
Quarter: 2016Q3

REPORT INFORMATION
  Report Type: Spontaneous
  Country: MX (occurrence: MX)
  Receive Date: 20160826
  Receipt Date: 20160826
  Transmission Date: 20161109
  Serious: Yes (Death, Other)
  Sender: FDA-Public Use
  Company Number: MX-SA-2016SA154619

PATIENT
  Age: 78 Year
  Sex: Male

DRUGS (1)
  1. ARAVA [Suspect]
     Active Substance: LEFLUNOMIDE
     Indication: RHEUMATOID ARTHRITIS
     Route: 048
     Dates: start: 2006, end: 20160412

REACTIONS (4)
  - Glaucoma [Unknown]
  - Weight decreased [Unknown]
  - Disease complication [Fatal]
  - Death [Fatal]

NARRATIVE: CASE EVENT DATE: 2012
